FAERS Safety Report 4785142-3 (Version None)
Quarter: 2005Q3

REPORT INFORMATION
  Report Type: 
  Country: None (occurrence: None)
  Receive Date: 20050928
  Receipt Date: 20050210
  Transmission Date: 20060218
  Serious: Yes (Life-Threatening, Hospitalization)
  Sender: FDA-Public Use
  Company Number: 2005FR-00318

PATIENT
  Age: 83 Year
  Sex: Female

DRUGS (2)
  1. IBUPROFEN [Suspect]
  2. CO-PROXAMOL [Concomitant]

REACTIONS (3)
  - ABDOMINAL PAIN [None]
  - DUODENAL ULCER PERFORATION [None]
  - HAEMATEMESIS [None]
